FAERS Safety Report 20687061 (Version 5)
Quarter: 2023Q1

REPORT INFORMATION
  Report Type: Spontaneous
  Country: JP (occurrence: JP)
  Receive Date: 20220407
  Receipt Date: 20230201
  Transmission Date: 20230417
  Serious: No
  Sender: FDA-Public Use
  Company Number: JP-Eisai-202112308_LEN-EC_P_1

PATIENT
  Age: 63 Year
  Sex: Female

DRUGS (10)
  1. LENVIMA [Suspect]
     Active Substance: LENVATINIB
     Indication: Endometrial cancer
     Route: 048
     Dates: start: 20220127, end: 20220217
  2. LENVIMA [Suspect]
     Active Substance: LENVATINIB
     Route: 048
     Dates: start: 20220224, end: 20220310
  3. LENVIMA [Suspect]
     Active Substance: LENVATINIB
     Route: 048
     Dates: start: 20220331, end: 20220714
  4. LENVIMA [Suspect]
     Active Substance: LENVATINIB
     Route: 048
     Dates: start: 20220825, end: 20220914
  5. LENVIMA [Suspect]
     Active Substance: LENVATINIB
     Route: 048
     Dates: start: 20220915, end: 20220926
  6. LENVIMA [Suspect]
     Active Substance: LENVATINIB
     Dosage: WEEKEND-OFF SCHEDULE
     Route: 048
     Dates: start: 20221006, end: 2022
  7. LENVIMA [Suspect]
     Active Substance: LENVATINIB
     Dosage: WEEKEND-OFF SCHEDULE
     Route: 048
     Dates: start: 2022, end: 2022
  8. LENVIMA [Suspect]
     Active Substance: LENVATINIB
     Dosage: WEEKEND-OFF SCHEDULE
     Route: 048
     Dates: start: 20221222
  9. KEYTRUDA [Suspect]
     Active Substance: PEMBROLIZUMAB
     Indication: Endometrial cancer
     Route: 041
     Dates: start: 20220127, end: 2022
  10. KEYTRUDA [Suspect]
     Active Substance: PEMBROLIZUMAB
     Route: 041
     Dates: start: 20221222

REACTIONS (4)
  - Hypertension [Recovered/Resolved]
  - Palmar-plantar erythrodysaesthesia syndrome [Recovered/Resolved]
  - Hypothyroidism [Recovering/Resolving]
  - Hyperthyroidism [Not Recovered/Not Resolved]

NARRATIVE: CASE EVENT DATE: 20220201
